FAERS Safety Report 9060170 (Version 1)
Quarter: 2013Q1

REPORT INFORMATION
  Report Type: Spontaneous
  Country: US (occurrence: None)
  Receive Date: 20130118
  Receipt Date: 20130118
  Transmission Date: 20140127
  Serious: Yes (Death)
  Sender: FDA-Public Use
  Company Number: AUR-APL-2013-00353

PATIENT
  Age: 37 Year
  Sex: Male

DRUGS (2)
  1. DIVALPROEX [Suspect]
     Route: 048
  2. OLANZAPINE (OLANZAPINE) [Suspect]

REACTIONS (2)
  - Completed suicide [None]
  - Toxicity to various agents [None]
